FAERS Safety Report 21092797 (Version 1)
Quarter: 2022Q3

REPORT INFORMATION
  Report Type: Spontaneous
  Country: SE (occurrence: SE)
  Receive Date: 20220718
  Receipt Date: 20220718
  Transmission Date: 20221027
  Serious: Yes (Death, Hospitalization, Other)
  Sender: FDA-Public Use
  Company Number: None

PATIENT
  Sex: Female

DRUGS (3)
  1. SERTRALINE HYDROCHLORIDE [Suspect]
     Active Substance: SERTRALINE HYDROCHLORIDE
     Indication: Acute psychosis
     Route: 065
  2. OLANZAPINE [Suspect]
     Active Substance: OLANZAPINE
     Indication: Acute psychosis
  3. OLANZAPINE [Suspect]
     Active Substance: OLANZAPINE

REACTIONS (8)
  - Renal failure [Fatal]
  - Hepatic failure [Fatal]
  - Hallucination, visual [Fatal]
  - Diarrhoea [Fatal]
  - Tachycardia [Fatal]
  - Hypotension [Fatal]
  - Hypoventilation [Fatal]
  - Dystonia [Fatal]
